FAERS Safety Report 13959696 (Version 1)
Quarter: 2017Q3

REPORT INFORMATION
  Report Type: Spontaneous
  Country: FR (occurrence: FR)
  Receive Date: 20170912
  Receipt Date: 20170912
  Transmission Date: 20171128
  Serious: Yes (Hospitalization)
  Sender: FDA-Public Use
  Company Number: FR-ASTRAZENECA-2017SE91832

PATIENT
  Age: 30294 Day
  Sex: Male

DRUGS (7)
  1. ABILIFY [Suspect]
     Active Substance: ARIPIPRAZOLE
     Indication: MANIA
     Route: 048
     Dates: start: 201704
  2. LEVOTHYROX [Concomitant]
     Active Substance: LEVOTHYROXINE
  3. D3 VITAMIN [Concomitant]
  4. ATACAND [Suspect]
     Active Substance: CANDESARTAN CILEXETIL
     Route: 048
  5. MANIDIPINE [Suspect]
     Active Substance: MANIDIPINE
  6. SILODOSIN [Suspect]
     Active Substance: SILODOSIN
     Route: 048
  7. INEXIUM [Suspect]
     Active Substance: ESOMEPRAZOLE
     Route: 048

REACTIONS (2)
  - Hyponatraemia [Recovering/Resolving]
  - Confusional state [Recovering/Resolving]

NARRATIVE: CASE EVENT DATE: 20170822
